FAERS Safety Report 7911699-7 (Version None)
Quarter: 2011Q4

REPORT INFORMATION
  Report Type: 
  Country: None (occurrence: None)
  Receive Date: 20111114
  Receipt Date: 20111107
  Transmission Date: 20120403
  Serious: Yes (Hospitalization, Other)
  Sender: FDA-Public Use
  Company Number: US-AMGEN-USASP2011058266

PATIENT
  Age: 43 Year
  Sex: Male

DRUGS (1)
  1. ENBREL [Suspect]
     Indication: PSORIASIS
     Dosage: 50 MG, QWK
     Dates: start: 20041201

REACTIONS (7)
  - IMPAIRED GASTRIC EMPTYING [None]
  - HIATUS HERNIA [None]
  - RECTAL FISSURE [None]
  - PNEUMONIA [None]
  - PYREXIA [None]
  - OESOPHAGEAL CARCINOMA [None]
  - DIARRHOEA [None]
